FAERS Safety Report 5833001-7 (Version None)
Quarter: 2008Q3

REPORT INFORMATION
  Report Type: 
  Country: None (occurrence: None)
  Receive Date: 20080804
  Receipt Date: 20080725
  Transmission Date: 20090109
  Serious: Yes (Death, Hospitalization)
  Sender: FDA-Public Use
  Company Number: FR-ABBOTT-08P-056-0458309-00

PATIENT
  Sex: Male
  Weight: 49 kg

DRUGS (8)
  1. KALETRA [Suspect]
     Indication: HIV INFECTION
     Route: 048
     Dates: start: 20060505, end: 20060523
  2. EMTRICITABINE, TENOFOVIR DISOPROXIL [Suspect]
     Indication: HIV INFECTION
     Route: 048
     Dates: start: 20060505, end: 20060522
  3. RITUXIMAB [Concomitant]
     Indication: LYMPHOMA
  4. CYCLOPHOSPHAMIDE [Concomitant]
     Indication: LYMPHOMA
  5. ADRYAMICINE [Concomitant]
     Indication: LYMPHOMA
  6. VINCRISTINE [Concomitant]
     Indication: LYMPHOMA
  7. PREDNISONE [Concomitant]
     Indication: LYMPHOMA
  8. CHOP COURSES [Concomitant]
     Indication: LYMPHOMA
     Dates: start: 20060510, end: 20060511

REACTIONS (1)
  - BONE MARROW FAILURE [None]
